FAERS Safety Report 20705954 (Version 2)
Quarter: 2022Q2

REPORT INFORMATION
  Report Type: Spontaneous
  Country: FR (occurrence: FR)
  Receive Date: 20220413
  Receipt Date: 20220419
  Transmission Date: 20220721
  Serious: Yes (Other)
  Sender: FDA-Public Use
  Company Number: None

PATIENT
  Age: 6 Year
  Sex: Female

DRUGS (5)
  1. ONDANSETRON [Suspect]
     Active Substance: ONDANSETRON
     Indication: Procedural nausea
     Dosage: UNK
     Route: 042
     Dates: start: 2011, end: 2011
  2. DIPRIVAN [Suspect]
     Active Substance: PROPOFOL
     Indication: General anaesthesia
     Dosage: UNK
     Route: 042
     Dates: start: 2011, end: 2011
  3. NIFLUMIC ACID [Suspect]
     Active Substance: NIFLUMIC ACID
     Indication: Pain
     Dosage: UNK
     Route: 048
     Dates: start: 2011, end: 2011
  4. SEVOFLURANE [Suspect]
     Active Substance: SEVOFLURANE
     Indication: General anaesthesia
     Dosage: UNK
     Route: 042
     Dates: start: 2011, end: 2011
  5. SUFENTA [Suspect]
     Active Substance: SUFENTANIL CITRATE
     Indication: General anaesthesia
     Dosage: UNK
     Route: 042
     Dates: start: 2011, end: 2011

REACTIONS (2)
  - Bronchospasm [Recovered/Resolved]
  - Hypotension [Recovered/Resolved]

NARRATIVE: CASE EVENT DATE: 20110101
